FAERS Safety Report 4536493-9 (Version None)
Quarter: 2004Q4

REPORT INFORMATION
  Report Type: 
  Country: None (occurrence: None)
  Receive Date: 20041223
  Receipt Date: 20041213
  Transmission Date: 20050328
  Serious: Yes (Death, Other)
  Sender: FDA-Public Use
  Company Number: DE-JNJFOC-20041100011

PATIENT
  Age: 94 Year
  Sex: Female
  Weight: 68 kg

DRUGS (7)
  1. RISPERDAL [Suspect]
     Indication: RESTLESSNESS
     Route: 049
  2. RISPERDAL [Suspect]
     Route: 049
  3. RISPERDAL [Suspect]
     Indication: DEMENTIA
     Route: 049
  4. NOVODIGAL [Concomitant]
  5. DYTIDE [Concomitant]
  6. DYTIDE [Concomitant]
  7. TAVOR [Concomitant]

REACTIONS (1)
  - PULMONARY EMBOLISM [None]
